FAERS Safety Report 8443029 (Version 2)
Quarter: 2012Q4

REPORT INFORMATION
  Report Type: 
  Country: DK (occurrence: DE)
  Receive Date: 20120306
  Receipt Date: 20121008
  Transmission Date: 20130627
  Serious: Yes (Death, Life-Threatening, Hospitalization)
  Sender: FDA-Public Use
  Company Number: DE-FRI-1000028761

PATIENT
  Sex: Male

DRUGS (11)
  1. CITALOPRAM [Suspect]
     Dosage: 20 mg
     Route: 048
  2. ASS [Interacting]
     Dosage: 100 mg
     Route: 048
  3. ZYPREXA [Concomitant]
     Dosage: 5 mg
     Route: 048
  4. XIMOVAN [Concomitant]
     Dosage: 7.5 mg
     Route: 048
  5. NITRENDIPIN [Concomitant]
     Dosage: 20 mg
     Route: 048
  6. BISOPROLOL [Concomitant]
     Dosage: 5 mg
     Route: 048
  7. LISINOPRIL COMP [Concomitant]
     Dosage: 20 mg lisinopril / 12.5 mg hydrochlorothiazide
     Route: 048
  8. NORSPAN [Concomitant]
     Dosage: 20 micrograms per hour
     Route: 050
  9. VITAMIN B-12 [Concomitant]
     Dosage: 142.8571 micrograms
     Route: 050
  10. LYRICA [Concomitant]
     Dosage: 150 mg
     Route: 048
     Dates: start: 20110707, end: 20110707
  11. BIFITERAL [Concomitant]
     Dosage: 10 ml
     Route: 048
     Dates: start: 20110706

REACTIONS (11)
  - Myocardial infarction [Fatal]
  - Gastric ulcer haemorrhage [Fatal]
  - Respiratory tract infection [Fatal]
  - Aspiration [Fatal]
  - Hypotension [Fatal]
  - Dyspnoea [Fatal]
  - Chest pain [Fatal]
  - Pallor [Fatal]
  - Melaena [Fatal]
  - Anaemia [Fatal]
  - Drug interaction [Fatal]
